FAERS Safety Report 10332044 (Version 1)
Quarter: 2014Q3

REPORT INFORMATION
  Report Type: Spontaneous
  Country: BR (occurrence: BR)
  Receive Date: 20140722
  Receipt Date: 20140722
  Transmission Date: 20150326
  Serious: Yes (Hospitalization)
  Sender: FDA-Public Use
  Company Number: BR-PFIZER INC-2014200959

PATIENT
  Age: 78 Year
  Sex: Male
  Weight: 88 kg

DRUGS (4)
  1. BENEFIX [Concomitant]
     Active Substance: COAGULATION FACTOR IX RECOMBINANT HUMAN\ISOPROPYL ALCOHOL
     Dosage: UNK
  2. LIPIDIL [Concomitant]
     Active Substance: FENOFIBRATE
     Indication: DIABETES MELLITUS
     Dosage: UNK
  3. GLIFAGE [Concomitant]
     Active Substance: METFORMIN HYDROCHLORIDE
     Dosage: UNK
  4. LYRICA [Suspect]
     Active Substance: PREGABALIN
     Dosage: 1 TABLET STRENGTH 150 MG 1X AT NIGHT AND 1 TABLET STRENGTH 75 MG 1X DURING THE DAY
     Route: 048
     Dates: start: 2012

REACTIONS (2)
  - Cystitis bacterial [Unknown]
  - Tremor [Unknown]
